FAERS Safety Report 13841552 (Version 2)
Quarter: 2017Q4

REPORT INFORMATION
  Report Type: Spontaneous
  Country: US (occurrence: US)
  Receive Date: 20170807
  Receipt Date: 20171003
  Transmission Date: 20180320
  Serious: No
  Sender: FDA-Public Use
  Company Number: US-ACTELION-A-NJ2017-155261

PATIENT
  Age: 69 Year
  Sex: Male

DRUGS (9)
  1. CLOPIDOGREL [Concomitant]
     Active Substance: CLOPIDOGREL BISULFATE
  2. OPSUMIT [Concomitant]
     Active Substance: MACITENTAN
     Indication: PULMONARY ARTERIAL HYPERTENSION
     Route: 048
  3. SPIRONOLACTONE. [Concomitant]
     Active Substance: SPIRONOLACTONE
  4. VELETRI [Suspect]
     Active Substance: EPOPROSTENOL
     Dosage: 43 NG/KG, PER MIN
     Route: 042
     Dates: start: 20170601
  5. POTASSIUM [Concomitant]
     Active Substance: POTASSIUM
  6. PANTOPRAZOLE [Concomitant]
     Active Substance: PANTOPRAZOLE
  7. ADCIRCA [Concomitant]
     Active Substance: TADALAFIL
  8. VELETRI [Suspect]
     Active Substance: EPOPROSTENOL
     Indication: PULMONARY ARTERIAL HYPERTENSION
     Dosage: 30 NG/KG, PER MIN
     Route: 042
     Dates: start: 20170530
  9. FUROSEMIDE. [Concomitant]
     Active Substance: FUROSEMIDE

REACTIONS (6)
  - Temporomandibular joint syndrome [Not Recovered/Not Resolved]
  - Muscular weakness [Recovered/Resolved]
  - Pallor [Recovered/Resolved]
  - Lethargy [Recovered/Resolved]
  - Anaemia [Unknown]
  - Dyspnoea [Recovered/Resolved]

NARRATIVE: CASE EVENT DATE: 20170606
